FAERS Safety Report 7148242-9 (Version None)
Quarter: 2010Q4

REPORT INFORMATION
  Report Type: 
  Country: None (occurrence: None)
  Receive Date: 20101209
  Receipt Date: 20101125
  Transmission Date: 20110411
  Serious: Yes (Hospitalization)
  Sender: FDA-Public Use
  Company Number: TR-RANBAXY-2010RR-39956

PATIENT
  Age: 41 Year
  Sex: Male

DRUGS (3)
  1. FLUOXETINE [Suspect]
     Indication: MAJOR DEPRESSION
     Dosage: 20 MG, UNK
  2. LAMOTRIGINE [Suspect]
     Indication: MAJOR DEPRESSION
     Dosage: 50 MG, UNK
  3. TIANEPTINE [Concomitant]
     Indication: DEPRESSION

REACTIONS (6)
  - FATIGUE [None]
  - MYALGIA [None]
  - PYREXIA [None]
  - RASH [None]
  - SKIN LESION [None]
  - STEVENS-JOHNSON SYNDROME [None]
